FAERS Safety Report 4469488-4 (Version None)
Quarter: 2005Q1

REPORT INFORMATION
  Report Type: 
  Country: None (occurrence: None)
  Receive Date: 20041005
  Receipt Date: 20040920
  Transmission Date: 20050727
  Serious: Yes (Hospitalization)
  Sender: FDA-Public Use
  Company Number: 209311

PATIENT
  Age: 47 Year
  Sex: Male
  Weight: 51 kg

DRUGS (5)
  1. AVASTIN [Suspect]
     Indication: COLORECTAL CANCER METASTATIC
     Dosage: 5 MG/KG, QW2, INTRAVENOUS
     Route: 042
     Dates: start: 20040622
  2. IRINOTECAN HCL [Suspect]
     Indication: COLORECTAL CANCER METASTATIC
     Dosage: 180 MG/M2, Q2W, INTRAVENOUS
     Route: 042
     Dates: start: 20040622
  3. FLUOROURACIL [Suspect]
     Indication: COLORECTAL CANCER METASTATIC
     Dosage: 2000 MG/M2, Q2W, INTRAVENOUS
     Route: 042
     Dates: start: 20040622
  4. LEVOTHYROXINE (LEVOTHYROXINE SODIUM) [Concomitant]
  5. SPIRONOLACTONE [Concomitant]

REACTIONS (4)
  - ANOREXIA [None]
  - GENERAL PHYSICAL HEALTH DETERIORATION [None]
  - HAEMOGLOBIN DECREASED [None]
  - OESOPHAGITIS [None]
